FAERS Safety Report 26207722 (Version 1)
Quarter: 2025Q4

REPORT INFORMATION
  Report Type: Spontaneous
  Country: US (occurrence: None)
  Receive Date: 20251225
  Receipt Date: 20251225
  Transmission Date: 20260117
  Serious: Yes (Life-Threatening, Hospitalization, Disabling)
  Sender: FDA-CTU
  Company Number: None

PATIENT
  Age: 51 Year
  Sex: Female
  Weight: 76.05 kg

DRUGS (1)
  1. BUPROPION [Suspect]
     Active Substance: BUPROPION
     Indication: Injury

REACTIONS (4)
  - Psychotic disorder [None]
  - Brain injury [None]
  - Memory impairment [None]
  - Post-traumatic stress disorder [None]

NARRATIVE: CASE EVENT DATE: 20230102
